FAERS Safety Report 10784506 (Version 1)
Quarter: 2015Q1

REPORT INFORMATION
  Report Type: Spontaneous
  Country: US (occurrence: None)
  Receive Date: 20150209
  Receipt Date: 20150209
  Transmission Date: 20150721
  Serious: Yes (Hospitalization)
  Sender: FDA-Public Use
  Company Number: None

PATIENT
  Age: 76 Year
  Sex: Female

DRUGS (1)
  1. LITHIUM [Suspect]
     Active Substance: LITHIUM CARBONATE
     Indication: DEPRESSION

REACTIONS (8)
  - Vertigo [None]
  - Neuropathy peripheral [None]
  - Balance disorder [None]
  - Incontinence [None]
  - Myalgia [None]
  - Ataxia [None]
  - Abasia [None]
  - Renal injury [None]

NARRATIVE: CASE EVENT DATE: 20100201
